FAERS Safety Report 6225611-2 (Version None)
Quarter: 2009Q2

REPORT INFORMATION
  Report Type: 
  Country: None (occurrence: None)
  Receive Date: 20090612
  Receipt Date: 20090428
  Transmission Date: 20091009
  Serious: No
  Sender: FDA-Public Use
  Company Number: US-ABBOTT-09P-163-0570500-00

PATIENT
  Sex: Male
  Weight: 116.22 kg

DRUGS (4)
  1. HUMIRA [Suspect]
     Indication: RHEUMATOID ARTHRITIS
     Route: 058
     Dates: start: 20080101, end: 20090201
  2. HUMIRA [Suspect]
     Route: 058
     Dates: start: 20090426
  3. METHOTREXATE [Concomitant]
     Indication: ARTHRITIS
  4. HYDROCODONE BITARTRATE [Concomitant]
     Indication: PAIN

REACTIONS (4)
  - ARTHRALGIA [None]
  - ERYTHEMA [None]
  - OEDEMA PERIPHERAL [None]
  - PAIN IN EXTREMITY [None]
